FAERS Safety Report 23983488 (Version 1)
Quarter: 2024Q2

REPORT INFORMATION
  Report Type: Spontaneous
  Country: US (occurrence: US)
  Receive Date: 20240617
  Receipt Date: 20240617
  Transmission Date: 20240716
  Serious: No
  Sender: FDA-Public Use
  Company Number: US-ABBVIE-5799698

PATIENT
  Age: 55 Year
  Weight: 48 kg

DRUGS (3)
  1. BOTOX COSMETIC [Suspect]
     Active Substance: ONABOTULINUMTOXINA
     Indication: Skin cosmetic procedure
     Dosage: TIME INTERVAL: AS NECESSARY: FREQUENCY : EVERY THREE MONTH? FORM STRENGTH: 100 MILLIGRAM
     Route: 030
     Dates: start: 20231002, end: 20231002
  2. BOTOX COSMETIC [Suspect]
     Active Substance: ONABOTULINUMTOXINA
     Indication: Skin cosmetic procedure
     Dosage: TIME INTERVAL: AS NECESSARY: FREQUENCY : EVERY THREE MONTH? FORM STRENGTH: 100 MILLIGRAM
     Route: 030
     Dates: start: 20231227, end: 20231227
  3. BOTOX COSMETIC [Suspect]
     Active Substance: ONABOTULINUMTOXINA
     Indication: Skin cosmetic procedure
     Dosage: TIME INTERVAL: AS NECESSARY: FREQUENCY : EVERY THREE MONTH? FORM STRENGTH: 100 MILLIGRAM
     Route: 030
     Dates: start: 20240321, end: 20240321

REACTIONS (1)
  - Therapeutic response shortened [Not Recovered/Not Resolved]

NARRATIVE: CASE EVENT DATE: 20240301
